FAERS Safety Report 5378018-4 (Version None)
Quarter: 2007Q2

REPORT INFORMATION
  Report Type: 
  Country: None (occurrence: None)
  Receive Date: 20070629
  Receipt Date: 20070618
  Transmission Date: 20071010
  Serious: Yes (Hospitalization)
  Sender: FDA-Public Use
  Company Number: 2007S1000034

PATIENT
  Age: 37 Year
  Sex: Male
  Weight: 118.8424 kg

DRUGS (12)
  1. ROXICODONE [Suspect]
     Dosage: 120 MG; QD; PO
     Route: 048
     Dates: start: 20060616
  2. FENTANYL [Suspect]
     Indication: DRUG TOLERANCE
     Dosage: 600 UG; PRN; BUCC
     Route: 002
     Dates: start: 20060518, end: 20060808
  3. ACETAMINOPHEN AND HYDROCODONE BITARTRATE [Suspect]
     Dates: start: 20060616
  4. NOVOLOG [Concomitant]
  5. LANTUS [Concomitant]
  6. ACEON [Concomitant]
  7. LEVITRA [Concomitant]
  8. STOOL SOFTENER [Concomitant]
  9. NEURONTIN [Concomitant]
  10. PRAVACHOL [Concomitant]
  11. ATIVAN [Concomitant]
  12. PHENERGAN HCL [Concomitant]

REACTIONS (2)
  - DRUG WITHDRAWAL SYNDROME [None]
  - TREATMENT NONCOMPLIANCE [None]
